FAERS Safety Report 4351021-9 (Version None)
Quarter: 2004Q2

REPORT INFORMATION
  Report Type: 
  Country: None (occurrence: None)
  Receive Date: 20040428
  Receipt Date: 20040422
  Transmission Date: 20050107
  Serious: Yes (Death, Hospitalization)
  Sender: FDA-Public Use
  Company Number: 138733USA

PATIENT
  Age: 28 Year
  Sex: Female

DRUGS (1)
  1. COPAXONE [Suspect]
     Indication: MULTIPLE SCLEROSIS
     Dates: start: 20040330, end: 20040401

REACTIONS (3)
  - ANAPHYLACTIC SHOCK [None]
  - CHEST PAIN [None]
  - RESPIRATORY ARREST [None]
